FAERS Safety Report 11810554 (Version 1)
Quarter: 2015Q4

REPORT INFORMATION
  Report Type: Spontaneous
  Country: US (occurrence: None)
  Receive Date: 20151207
  Receipt Date: 20151207
  Transmission Date: 20160305
  Serious: No
  Sender: FDA-Public Use
  Company Number: None

PATIENT
  Age: 12 Year
  Sex: Female

DRUGS (14)
  1. ONFI [Concomitant]
     Active Substance: CLOBAZAM
  2. IMPRAMINE POW HCL [Concomitant]
  3. AFINITOR [Suspect]
     Active Substance: EVEROLIMUS
     Indication: BENIGN RENAL NEOPLASM
     Route: 048
     Dates: start: 20121214
  4. MILK OF MAGN [Concomitant]
  5. RANITIDINE [Concomitant]
     Active Substance: RANITIDINE\RANITIDINE HYDROCHLORIDE
  6. OMEPRAZOLE. [Concomitant]
     Active Substance: OMEPRAZOLE
  7. ALOE [Concomitant]
     Active Substance: ALOE
  8. ISRADIPINE. [Concomitant]
     Active Substance: ISRADIPINE
  9. LAMOTRIGINE CHW [Concomitant]
  10. RISPERDONE SOL [Concomitant]
  11. SIMETHCONE [Concomitant]
  12. TYLENOL [Concomitant]
     Active Substance: ACETAMINOPHEN
  13. AFINITOR [Concomitant]
     Active Substance: EVEROLIMUS
  14. SABREL [Concomitant]

REACTIONS (1)
  - Stomatitis [None]

NARRATIVE: CASE EVENT DATE: 201508
